FAERS Safety Report 25405397 (Version 2)
Quarter: 2025Q3

REPORT INFORMATION
  Report Type: Spontaneous
  Country: GB (occurrence: GB)
  Receive Date: 20250606
  Receipt Date: 20250909
  Transmission Date: 20251020
  Serious: Yes (Other)
  Sender: SANDOZ
  Company Number: GB-002147023-NVSC2024GB236528

PATIENT
  Sex: Female

DRUGS (5)
  1. COSENTYX [Suspect]
     Active Substance: SECUKINUMAB
     Dosage: 150 MG, QMO
     Route: 065
     Dates: start: 20201001
  2. COSENTYX [Suspect]
     Active Substance: SECUKINUMAB
     Indication: Ankylosing spondylitis
     Dosage: 300 MG, QMO
     Route: 065
  3. COSENTYX [Suspect]
     Active Substance: SECUKINUMAB
     Dosage: 300 MG, QMO
     Route: 065
  4. METHOTREXATE [Suspect]
     Active Substance: METHOTREXATE
     Route: 065
  5. METHOTREXATE [Suspect]
     Active Substance: METHOTREXATE
     Indication: Product used for unknown indication
     Route: 065

REACTIONS (14)
  - Ankylosing spondylitis [Unknown]
  - Hand deformity [Not Recovered/Not Resolved]
  - Pain [Not Recovered/Not Resolved]
  - Peripheral swelling [Unknown]
  - Swelling [Not Recovered/Not Resolved]
  - Arthralgia [Unknown]
  - Finger deformity [Recovering/Resolving]
  - Grip strength decreased [Unknown]
  - Musculoskeletal discomfort [Unknown]
  - Back pain [Recovering/Resolving]
  - Drug intolerance [Recovering/Resolving]
  - Muscular weakness [Recovering/Resolving]
  - Absence of immediate treatment response [Unknown]
  - Product prescribing issue [Unknown]
